FAERS Safety Report 9356620 (Version 5)
Quarter: 2013Q3

REPORT INFORMATION
  Report Type: Spontaneous
  Country: US (occurrence: US)
  Receive Date: 20130619
  Receipt Date: 20130905
  Transmission Date: 20140515
  Serious: Yes (Hospitalization)
  Sender: FDA-Public Use
  Company Number: US-GILEAD-2013-0077411

PATIENT
  Sex: Female

DRUGS (2)
  1. LETAIRIS [Suspect]
     Indication: PULMONARY ARTERIAL HYPERTENSION
     Dosage: 10 MG, QD
     Route: 048
     Dates: start: 20130218
  2. ADCIRCA [Concomitant]

REACTIONS (7)
  - Heart rate irregular [Unknown]
  - Bronchitis [Unknown]
  - Unevaluable event [Unknown]
  - Malaise [Unknown]
  - Dyspnoea [Unknown]
  - Fluid retention [Unknown]
  - Dyspnoea [Unknown]
